FAERS Safety Report 10696073 (Version 1)
Quarter: 2015Q1

REPORT INFORMATION
  Report Type: Spontaneous
  Country: US (occurrence: US)
  Receive Date: 20150107
  Receipt Date: 20150107
  Transmission Date: 20150721
  Serious: Yes (Hospitalization)
  Sender: FDA-Public Use
  Company Number: US-CELGENEUS-163-22393-14035623

PATIENT
  Age: 65 Year
  Sex: Female

DRUGS (1)
  1. ISTODAX [Suspect]
     Active Substance: ROMIDEPSIN
     Indication: PERIPHERAL T-CELL LYMPHOMA UNSPECIFIED
     Dosage: 8 MILLIGRAM/SQ. METER
     Route: 065

REACTIONS (2)
  - Bacterial infection [Unknown]
  - Chills [Unknown]

NARRATIVE: CASE EVENT DATE: 2014
